FAERS Safety Report 9658160 (Version 2)
Quarter: 2013Q4

REPORT INFORMATION
  Report Type: Spontaneous
  Country: US (occurrence: US)
  Receive Date: 20131030
  Receipt Date: 20131221
  Transmission Date: 20140711
  Serious: No
  Sender: FDA-Public Use
  Company Number: US-009507513-1310USA013487

PATIENT
  Age: 84 Year
  Sex: Female
  Weight: 77.98 kg

DRUGS (2)
  1. OXYTROL FOR WOMEN [Suspect]
     Indication: INCONTINENCE
     Dosage: 1 DF, Q4D
     Route: 062
     Dates: start: 20131012, end: 20131016
  2. OXYTROL FOR WOMEN [Suspect]
     Indication: HYPERTONIC BLADDER

REACTIONS (3)
  - Skin burning sensation [Recovered/Resolved]
  - Blister [Recovered/Resolved]
  - Application site pruritus [Recovering/Resolving]
